FAERS Safety Report 12839858 (Version 1)
Quarter: 2016Q4

REPORT INFORMATION
  Report Type: Spontaneous
  Country: FR (occurrence: FR)
  Receive Date: 20161012
  Receipt Date: 20161012
  Transmission Date: 20170207
  Serious: Yes (Hospitalization)
  Sender: FDA-Public Use
  Company Number: FR-PFIZER INC-2016461530

PATIENT
  Age: 86 Year
  Sex: Male

DRUGS (10)
  1. TAHOR [Suspect]
     Active Substance: ATORVASTATIN CALCIUM
     Dosage: 80 MG, 1X/DAY
  2. TAZOCILLINE [Suspect]
     Active Substance: PIPERACILLIN SODIUM\TAZOBACTAM SODIUM
     Dosage: UNK
     Route: 042
     Dates: start: 20160805, end: 20160809
  3. AMIKACINE [Suspect]
     Active Substance: AMIKACIN
     Dosage: UNK
     Route: 042
     Dates: start: 20160805, end: 20160805
  4. PERINDOPRIL [Suspect]
     Active Substance: PERINDOPRIL
     Dosage: 2 MG, 1X/DAY
     Route: 048
  5. WARFARINE [Suspect]
     Active Substance: WARFARIN
     Dosage: 5 MG, 1X/DAY
     Route: 048
  6. ALDACTONE [Suspect]
     Active Substance: SPIRONOLACTONE
     Dosage: 25 MG, 1X/DAY
     Route: 048
  7. HEPARINE SODIUM [Suspect]
     Active Substance: HEPARIN SODIUM
     Dosage: UNK
     Route: 041
     Dates: start: 201608
  8. BISOCE [Concomitant]
     Active Substance: BISOPROLOL
     Dosage: 2.5 MG, 2X/DAY
     Route: 048
  9. KARDEGIC [Suspect]
     Active Substance: ASPIRIN LYSINE
     Dosage: 75 MG, 1X/DAY
     Route: 048
  10. INEXIUM [Suspect]
     Active Substance: ESOMEPRAZOLE
     Dosage: 40 MG, 2X/DAY

REACTIONS (5)
  - Hepatitis cholestatic [Recovering/Resolving]
  - International normalised ratio increased [Recovering/Resolving]
  - Rhabdomyolysis [Recovering/Resolving]
  - Acute kidney injury [Recovering/Resolving]
  - Septic shock [Recovering/Resolving]

NARRATIVE: CASE EVENT DATE: 20160803
